FAERS Safety Report 4745819-2 (Version None)
Quarter: 2005Q3

REPORT INFORMATION
  Report Type: 
  Country: None (occurrence: None)
  Receive Date: 20050815
  Receipt Date: 20050815
  Transmission Date: 20060218
  Serious: Yes (Life-Threatening, Disabling)
  Sender: FDA-Public Use
  Company Number: None

PATIENT
  Age: 73 Year
  Sex: Female
  Weight: 103 kg

DRUGS (5)
  1. HEPARIN [Suspect]
     Indication: CATHETERISATION CARDIAC
     Dosage: ONCE INTRAVENOU;  INTRAVENOU
     Route: 042
     Dates: start: 20050417, end: 20050417
  2. HEPARIN [Suspect]
     Indication: THROMBOSIS PROPHYLAXIS
     Dosage: ONCE INTRAVENOU;  INTRAVENOU
     Route: 042
     Dates: start: 20050417, end: 20050417
  3. HEPARIN [Suspect]
     Indication: CATHETERISATION CARDIAC
     Dosage: ONCE INTRAVENOU;  INTRAVENOU
     Route: 042
     Dates: start: 20040421, end: 20050430
  4. HEPARIN [Suspect]
     Indication: THROMBOSIS PROPHYLAXIS
     Dosage: ONCE INTRAVENOU;  INTRAVENOU
     Route: 042
     Dates: start: 20040421, end: 20050430
  5. ABCIXIMAB [Concomitant]

REACTIONS (8)
  - ENCEPHALOPATHY [None]
  - HEPARIN-INDUCED THROMBOCYTOPENIA [None]
  - ISCHAEMIA [None]
  - LEG AMPUTATION [None]
  - MULTI-ORGAN FAILURE [None]
  - PROCEDURAL COMPLICATION [None]
  - TACHYARRHYTHMIA [None]
  - VENOUS THROMBOSIS LIMB [None]
